FAERS Safety Report 7087085-1 (Version None)
Quarter: 2010Q4

REPORT INFORMATION
  Report Type: 
  Country: None (occurrence: None)
  Receive Date: 20101106
  Receipt Date: 20101026
  Transmission Date: 20110411
  Serious: No
  Sender: FDA-Public Use
  Company Number: US-WYE-H18393110

PATIENT
  Sex: Female

DRUGS (1)
  1. PREMARIN [Suspect]
     Route: 067
     Dates: start: 20100201, end: 20100701

REACTIONS (2)
  - ALOPECIA [None]
  - SEBORRHOEA [None]
